FAERS Safety Report 5008615-7 (Version None)
Quarter: 2006Q2

REPORT INFORMATION
  Report Type: 
  Country: None (occurrence: None)
  Receive Date: 20060523
  Receipt Date: 20060511
  Transmission Date: 20061013
  Serious: Yes (Hospitalization)
  Sender: FDA-Public Use
  Company Number: US-ROCHE-447671

PATIENT
  Age: 80 Year
  Sex: Female

DRUGS (1)
  1. BONIVA [Suspect]
     Indication: OSTEOPOROSIS
     Route: 048

REACTIONS (4)
  - DRUG ADMINISTRATION ERROR [None]
  - DRUG DOSE OMISSION [None]
  - GASTROINTESTINAL HAEMORRHAGE [None]
  - INAPPROPRIATE SCHEDULE OF DRUG ADMINISTRATION [None]
